FAERS Safety Report 8980624 (Version 2)
Quarter: 2013Q1

REPORT INFORMATION
  Report Type: Spontaneous
  Country: AE (occurrence: CA)
  Receive Date: 20121221
  Receipt Date: 20130304
  Transmission Date: 20140127
  Serious: Yes (Death)
  Sender: FDA-Public Use
  Company Number: AE-GENZYME-CAMP-1002624

PATIENT
  Age: 6 Year
  Sex: Male

DRUGS (7)
  1. CAMPATH [Suspect]
     Indication: POST TRANSPLANT LYMPHOPROLIFERATIVE DISORDER
     Dosage: UNK
     Route: 065
  2. CYCLOPHOSPHAMIDE [Concomitant]
     Indication: PRODUCT USED FOR UNKNOWN INDICATION
     Dosage: UNK
     Route: 065
  3. VINCRISTINE [Concomitant]
     Indication: PRODUCT USED FOR UNKNOWN INDICATION
     Dosage: UNK
     Route: 065
  4. DOXORUBICIN [Concomitant]
     Indication: PRODUCT USED FOR UNKNOWN INDICATION
     Dosage: UNK
     Route: 065
  5. PREDNISONE [Concomitant]
     Indication: PRODUCT USED FOR UNKNOWN INDICATION
     Dosage: UNK
     Route: 065
  6. PENTOSTATIN [Concomitant]
     Indication: PRODUCT USED FOR UNKNOWN INDICATION
     Dosage: UNK
     Route: 065
  7. TACROLIMUS [Concomitant]
     Indication: IMMUNOSUPPRESSION
     Dosage: UNK
     Route: 065

REACTIONS (2)
  - Multi-organ failure [Fatal]
  - Infection [Fatal]
